FAERS Safety Report 22640277 (Version 1)
Quarter: 2023Q2

REPORT INFORMATION
  Report Type: Report from Study
  Country: US (occurrence: US)
  Receive Date: 20230626
  Receipt Date: 20230626
  Transmission Date: 20230721
  Serious: No
  Sender: FDA-Public Use
  Company Number: US-002147023-NVSC2023US142897

PATIENT
  Sex: Female

DRUGS (3)
  1. CLOBETASOL [Suspect]
     Active Substance: CLOBETASOL
     Indication: Psoriasis
     Dosage: UNK
     Route: 065
  2. TRIAMCINOLONE [Suspect]
     Active Substance: TRIAMCINOLONE
     Indication: Psoriasis
     Dosage: UNK
     Route: 065
  3. IRON [Suspect]
     Active Substance: IRON
     Indication: Psoriasis
     Dosage: UNK
     Route: 065

REACTIONS (7)
  - Arthritis [Unknown]
  - Guttate psoriasis [Unknown]
  - Pruritus [Unknown]
  - Skin exfoliation [Unknown]
  - Erythema [Unknown]
  - Psoriasis [Unknown]
  - Drug ineffective [Unknown]
